FAERS Safety Report 18141864 (Version 1)
Quarter: 2020Q3

REPORT INFORMATION
  Report Type: Not Available
  Country: US (occurrence: US)
  Receive Date: 20200812
  Receipt Date: 20200812
  Transmission Date: 20201103
  Serious: No
  Sender: FDA-Public Use
  Company Number: US-NEUROCRINE BIOSCIENCES INC.-2020NBI02764

PATIENT
  Age: 69 Year
  Sex: Female

DRUGS (1)
  1. INGREZZA [Suspect]
     Active Substance: VALBENAZINE
     Indication: TARDIVE DYSKINESIA
     Route: 048
     Dates: start: 20200710, end: 20200723

REACTIONS (3)
  - Dysuria [Unknown]
  - Disturbance in attention [Unknown]
  - Lip swelling [Unknown]

NARRATIVE: CASE EVENT DATE: 202007
